FAERS Safety Report 20669848 (Version 1)
Quarter: 2022Q2

REPORT INFORMATION
  Report Type: Report from Study
  Country: KR (occurrence: KR)
  Receive Date: 20220404
  Receipt Date: 20220404
  Transmission Date: 20220720
  Serious: Yes (Hospitalization, Other)
  Sender: FDA-Public Use
  Company Number: KR-ViiV Healthcare Limited-KR2022GSK058182

PATIENT
  Age: 30 Year
  Sex: Male
  Weight: 67 kg

DRUGS (1)
  1. DOLUTEGRAVIR SODIUM\LAMIVUDINE [Suspect]
     Active Substance: DOLUTEGRAVIR SODIUM\LAMIVUDINE
     Indication: HIV infection
     Dosage: 1 DF, QD
     Route: 048
     Dates: start: 20200917

REACTIONS (1)
  - Spinal cord haemorrhage [Recovered/Resolved]

NARRATIVE: CASE EVENT DATE: 20210926
